FAERS Safety Report 20906401 (Version 1)
Quarter: 2022Q2

REPORT INFORMATION
  Report Type: Spontaneous
  Country: US (occurrence: None)
  Receive Date: 20220602
  Receipt Date: 20220602
  Transmission Date: 20220721
  Serious: Yes (Hospitalization, Other)
  Sender: FDA-Public Use
  Company Number: None

PATIENT
  Age: 95 Year
  Sex: Male
  Weight: 75 kg

DRUGS (1)
  1. WARFARIN SODIUM [Suspect]
     Active Substance: WARFARIN SODIUM
     Indication: Deep vein thrombosis
     Dosage: FREQUENCY : ONCE;?
     Route: 048
     Dates: start: 20210511

REACTIONS (2)
  - Deep vein thrombosis [None]
  - Anticoagulation drug level below therapeutic [None]

NARRATIVE: CASE EVENT DATE: 20220518
